FAERS Safety Report 5084941-0 (Version None)
Quarter: 2006Q3

REPORT INFORMATION
  Report Type: 
  Country: None (occurrence: None)
  Receive Date: 20060815
  Receipt Date: 20060801
  Transmission Date: 20061208
  Serious: Yes (Hospitalization)
  Sender: FDA-Public Use
  Company Number: 2006PV018586

PATIENT
  Age: 49 Year
  Sex: Female

DRUGS (3)
  1. BYETTA [Suspect]
     Indication: DIABETES MELLITUS NON-INSULIN-DEPENDENT
     Dosage: 5 MCG BID SC ; 5 MCG QAM SC ; 10 MCG OPM SC
     Route: 058
     Dates: start: 20060604, end: 20060722
  2. BYETTA [Suspect]
     Indication: DIABETES MELLITUS NON-INSULIN-DEPENDENT
     Dosage: 5 MCG BID SC ; 5 MCG QAM SC ; 10 MCG OPM SC
     Route: 058
     Dates: start: 20060723
  3. BYETTA [Suspect]
     Indication: DIABETES MELLITUS NON-INSULIN-DEPENDENT
     Dosage: 5 MCG BID SC ; 5 MCG QAM SC ; 10 MCG OPM SC
     Route: 058
     Dates: start: 20060723

REACTIONS (13)
  - ABDOMINAL DISTENSION [None]
  - BLOOD GLUCOSE DECREASED [None]
  - DIZZINESS [None]
  - DRUG INEFFECTIVE FOR UNAPPROVED INDICATION [None]
  - DYSPNOEA [None]
  - HEADACHE [None]
  - HYPOGLYCAEMIA [None]
  - INJECTION SITE BRUISING [None]
  - IRRITABILITY [None]
  - NAUSEA [None]
  - OEDEMA PERIPHERAL [None]
  - TREMOR [None]
  - WEIGHT LOSS POOR [None]
